FAERS Safety Report 4724303-6 (Version None)
Quarter: 2005Q3

REPORT INFORMATION
  Report Type: 
  Country: None (occurrence: None)
  Receive Date: 20050721
  Receipt Date: 20050721
  Transmission Date: 20060218
  Serious: Yes (Other)
  Sender: FDA-Public Use
  Company Number: None

PATIENT
  Age: 54 Year
  Sex: Female
  Weight: 68.0396 kg

DRUGS (2)
  1. FENTANYL [Suspect]
     Indication: NEUROPATHIC PAIN
     Dosage: 100 MCG    Q 48    TRANSDERMA
     Route: 062
     Dates: start: 20030425, end: 20040901
  2. FENTANYL [Suspect]
     Dosage: 100 MCG   Q 48       TRANSDERMA
     Route: 062
     Dates: start: 20040901, end: 20050720

REACTIONS (2)
  - DRUG WITHDRAWAL SYNDROME [None]
  - PHARMACEUTICAL PRODUCT COMPLAINT [None]
